FAERS Safety Report 5937888-9 (Version None)
Quarter: 2008Q4

REPORT INFORMATION
  Report Type: 
  Country: None (occurrence: None)
  Receive Date: 20081031
  Receipt Date: 20081020
  Transmission Date: 20090506
  Serious: Yes (Other)
  Sender: FDA-Public Use
  Company Number: US-PFIZER INC-2008088278

PATIENT
  Sex: Female
  Weight: 113.4 kg

DRUGS (6)
  1. LYRICA [Suspect]
     Dates: start: 20081001, end: 20081001
  2. NEURONTIN [Suspect]
  3. OXYCONTIN [Concomitant]
  4. CYMBALTA [Concomitant]
  5. ACETYLSALICYLIC ACID SRT [Concomitant]
  6. IBUPROFEN TABLETS [Concomitant]

REACTIONS (4)
  - COMA [None]
  - DRUG TOLERANCE [None]
  - FEELING ABNORMAL [None]
  - INITIAL INSOMNIA [None]
